FAERS Safety Report 14858239 (Version 1)
Quarter: 2018Q2

REPORT INFORMATION
  Report Type: Report from Study
  Country: PT (occurrence: PT)
  Receive Date: 20180508
  Receipt Date: 20180508
  Transmission Date: 20180711
  Serious: Yes (Death)
  Sender: FDA-Public Use
  Company Number: PT-TEVA-2018-PT-889828

PATIENT
  Age: 63 Year
  Sex: Male

DRUGS (2)
  1. MYCOPHENOLATE MOFETIL. [Suspect]
     Active Substance: MYCOPHENOLATE MOFETIL
     Indication: IMMUNOSUPPRESSANT DRUG THERAPY
     Dosage: 2500 MILLIGRAM DAILY;
     Route: 065
  2. EVEROLIMUS. [Suspect]
     Active Substance: EVEROLIMUS
     Indication: IMMUNOSUPPRESSANT DRUG THERAPY
     Dosage: 1 MILLIGRAM DAILY;
     Route: 065

REACTIONS (5)
  - Human herpesvirus 8 infection [Fatal]
  - Respiratory failure [Fatal]
  - Kaposi^s sarcoma [Fatal]
  - Dyspnoea [Fatal]
  - Lung infiltration [Fatal]
